FAERS Safety Report 20584528 (Version 6)
Quarter: 2025Q3

REPORT INFORMATION
  Report Type: Report from Study
  Country: EU (occurrence: EU)
  Receive Date: 20220311
  Receipt Date: 20250715
  Transmission Date: 20251021
  Serious: Yes (Hospitalization, Other)
  Sender: NOVARTIS
  Company Number: EU-NOVARTISPH-NVSC2022PT051564

PATIENT
  Age: 69 Year
  Sex: Male
  Weight: 88.9 kg

DRUGS (25)
  1. ENTRESTO [Suspect]
     Active Substance: SACUBITRIL\VALSARTAN
     Indication: Heart failure with reduced ejection fraction
     Route: 065
  2. ENTRESTO [Suspect]
     Active Substance: SACUBITRIL\VALSARTAN
     Route: 065
  3. ENTRESTO [Suspect]
     Active Substance: SACUBITRIL\VALSARTAN
     Dosage: UNK UNK, BID (24/26 MG)
     Route: 048
  4. ENTRESTO [Suspect]
     Active Substance: SACUBITRIL\VALSARTAN
     Dosage: 1 DOSAGE FORM, BID (97/103 MG)
     Route: 048
     Dates: start: 20220408, end: 20220705
  5. ENTRESTO [Suspect]
     Active Substance: SACUBITRIL\VALSARTAN
     Route: 048
  6. ISOSORBIDE MONONITRATE [Concomitant]
     Active Substance: ISOSORBIDE MONONITRATE
     Indication: Product used for unknown indication
     Route: 065
  7. FUROSEMIDE [Concomitant]
     Active Substance: FUROSEMIDE
     Indication: Product used for unknown indication
     Dosage: 40 MG, BID
     Route: 065
  8. FUROSEMIDE [Concomitant]
     Active Substance: FUROSEMIDE
     Route: 048
  9. FUROSEMIDE [Concomitant]
     Active Substance: FUROSEMIDE
     Route: 065
  10. PANTOPRAZOLE [Concomitant]
     Active Substance: PANTOPRAZOLE
     Indication: Product used for unknown indication
     Route: 065
  11. ASPIRIN\CAFFEINE\CODEINE PHOSPHATE\PHENACETIN [Concomitant]
     Active Substance: ASPIRIN\CAFFEINE\CODEINE PHOSPHATE\PHENACETIN
     Indication: Product used for unknown indication
     Route: 065
  12. ASPIRIN\CAFFEINE\CODEINE PHOSPHATE\PHENACETIN [Concomitant]
     Active Substance: ASPIRIN\CAFFEINE\CODEINE PHOSPHATE\PHENACETIN
     Route: 048
  13. ATORVASTATIN [Concomitant]
     Active Substance: ATORVASTATIN
     Indication: Product used for unknown indication
     Route: 048
  14. METFORMIN [Concomitant]
     Active Substance: METFORMIN HYDROCHLORIDE
     Indication: Product used for unknown indication
     Dosage: 1000 MG, BID
     Route: 065
  15. METFORMIN [Concomitant]
     Active Substance: METFORMIN HYDROCHLORIDE
     Dosage: 100 MG, BID
     Route: 065
  16. FINASTERIDE [Concomitant]
     Active Substance: FINASTERIDE
     Indication: Product used for unknown indication
     Route: 065
  17. BISOPROLOL [Concomitant]
     Active Substance: BISOPROLOL
     Indication: Product used for unknown indication
     Route: 048
  18. BISOPROLOL [Concomitant]
     Active Substance: BISOPROLOL
     Route: 048
  19. CALCIUM\POLYSTYRENE [Concomitant]
     Active Substance: CALCIUM\POLYSTYRENE
     Indication: Product used for unknown indication
     Dosage: 20 G, BID (2X DAY FOR ONE WEEK)
     Route: 065
  20. CALCIUM\POLYSTYRENE [Concomitant]
     Active Substance: CALCIUM\POLYSTYRENE
     Route: 065
  21. CLOPIDOGREL [Concomitant]
     Active Substance: CLOPIDOGREL BISULFATE
     Indication: Product used for unknown indication
     Route: 065
  22. CALCIUM POLYSTYRENE SULFONATE [Concomitant]
     Active Substance: CALCIUM POLYSTYRENE SULFONATE
     Indication: Product used for unknown indication
     Route: 065
  23. TIAPRIDE HYDROCHLORIDE [Concomitant]
     Active Substance: TIAPRIDE HYDROCHLORIDE
     Indication: Product used for unknown indication
     Route: 065
  24. DIAZEPAM [Concomitant]
     Active Substance: DIAZEPAM
     Indication: Product used for unknown indication
     Dosage: UNK, QD (1 IN THE EVENING)
     Route: 065
  25. AMITRIPTYLINE [Concomitant]
     Active Substance: AMITRIPTYLINE
     Indication: Product used for unknown indication
     Dosage: UNK, QD (1 IN THE MORNING)
     Route: 065

REACTIONS (13)
  - Fall [Recovering/Resolving]
  - Cardiac failure congestive [Unknown]
  - Fatigue [Recovered/Resolved]
  - Testicular oedema [Recovered/Resolved]
  - Oedema peripheral [Unknown]
  - Dyspnoea at rest [Recovered/Resolved]
  - Dilated cardiomyopathy [Unknown]
  - Pancytopenia [Unknown]
  - Anaemia macrocytic [Unknown]
  - Paranasal sinus inflammation [Unknown]
  - Weight decreased [Unknown]
  - Anaemia [Unknown]
  - Blood creatinine increased [Unknown]
